FAERS Safety Report 5280449-8 (Version None)
Quarter: 2007Q1

REPORT INFORMATION
  Report Type: 
  Country: None (occurrence: None)
  Receive Date: 20070329
  Receipt Date: 20070319
  Transmission Date: 20070707
  Serious: Yes (Life-Threatening)
  Sender: FDA-Public Use
  Company Number: TR-AVENTIS-200712466GDDC

PATIENT
  Age: 15 Month

DRUGS (6)
  1. CEFOTAXIME [Suspect]
     Indication: BRONCHOPNEUMONIA
     Dosage: DOSE: UNK
  2. CEFOTAXIME [Suspect]
     Indication: SEPSIS
     Dosage: DOSE: UNK
  3. VANCOMYCIN [Suspect]
     Indication: BRONCHOPNEUMONIA
     Dosage: DOSE: UNK
  4. VANCOMYCIN [Suspect]
     Indication: SEPSIS
     Dosage: DOSE: UNK
  5. AMIKACIN [Suspect]
     Indication: BRONCHOPNEUMONIA
     Dosage: DOSE: UNK
  6. AMIKACIN [Suspect]
     Indication: SEPSIS
     Dosage: DOSE: UNK

REACTIONS (1)
  - DRUG RASH WITH EOSINOPHILIA AND SYSTEMIC SYMPTOMS [None]
